FAERS Safety Report 7965984-3 (Version None)
Quarter: 2011Q4

REPORT INFORMATION
  Report Type: 
  Country: None (occurrence: None)
  Receive Date: 20111208
  Receipt Date: 20111130
  Transmission Date: 20120403
  Serious: Yes (Other)
  Sender: FDA-Public Use
  Company Number: US-PURDUE-USA-2011-0079039

PATIENT
  Sex: Male

DRUGS (2)
  1. OXYCONTIN [Suspect]
     Indication: NECK PAIN
     Dosage: 20 MG, Q8H
     Dates: end: 20110601
  2. OXYCONTIN [Suspect]
     Dosage: 30 MG, Q8H
     Route: 048
     Dates: start: 20110627

REACTIONS (2)
  - SPINAL CORD OPERATION [None]
  - PAIN [None]
